FAERS Safety Report 6833633-3 (Version None)
Quarter: 2010Q3

REPORT INFORMATION
  Report Type: 
  Country: None (occurrence: None)
  Receive Date: 20100712
  Receipt Date: 20070329
  Transmission Date: 20110219
  Serious: Yes (Other)
  Sender: FDA-Public Use
  Company Number: US-PFIZER INC-2007026283

PATIENT
  Sex: Female
  Weight: 49.9 kg

DRUGS (1)
  1. CHANTIX [Suspect]
     Indication: EX-TOBACCO USER
     Dates: start: 20070321, end: 20070301

REACTIONS (3)
  - DRY MOUTH [None]
  - DYSPHAGIA [None]
  - PARAESTHESIA ORAL [None]
